FAERS Safety Report 11908794 (Version 1)
Quarter: 2016Q1

REPORT INFORMATION
  Report Type: Spontaneous
  Country: US (occurrence: US)
  Receive Date: 20160111
  Receipt Date: 20160111
  Transmission Date: 20160526
  Serious: No
  Sender: FDA-Public Use
  Company Number: US-GALDERMA-US15007303

PATIENT
  Age: 42 Year
  Sex: Female

DRUGS (1)
  1. SOOLANTRA [Suspect]
     Active Substance: IVERMECTIN
     Indication: PRODUCT USED FOR UNKNOWN INDICATION
     Dosage: 1%
     Route: 061
     Dates: start: 20150909, end: 20150921

REACTIONS (2)
  - Dry skin [Unknown]
  - Dry mouth [Unknown]

NARRATIVE: CASE EVENT DATE: 20150909
